FAERS Safety Report 10583399 (Version 1)
Quarter: 2014Q4

REPORT INFORMATION
  Report Type: Spontaneous
  Country: US (occurrence: None)
  Receive Date: 20141112
  Receipt Date: 20141112
  Transmission Date: 20150529
  Serious: Yes (Other)
  Sender: FDA-Public Use
  Company Number: ADR-2014-02076

PATIENT
  Sex: Male

DRUGS (3)
  1. VALIUM [Suspect]
     Active Substance: DIAZEPAM
  2. BACLOFEN INTRATHECAL [Suspect]
     Active Substance: BACLOFEN
     Indication: MUSCLE SPASTICITY
  3. DRAMAMINE [Suspect]
     Active Substance: DIMENHYDRINATE

REACTIONS (15)
  - Implant site swelling [None]
  - Blood pressure increased [None]
  - Implant site erythema [None]
  - Device extrusion [None]
  - Pyrexia [None]
  - Impaired healing [None]
  - Choking [None]
  - Implant site vesicles [None]
  - Heart rate abnormal [None]
  - Emotional disorder [None]
  - Therapeutic response decreased [None]
  - Anxiety [None]
  - Dystonia [None]
  - Incision site complication [None]
  - Movement disorder [None]
